FAERS Safety Report 6236865-0 (Version None)
Quarter: 2009Q2

REPORT INFORMATION
  Report Type: 
  Country: None (occurrence: None)
  Receive Date: 20090619
  Receipt Date: 20090616
  Transmission Date: 20091009
  Serious: Yes (Death, Other)
  Sender: FDA-Public Use
  Company Number: FR-JNJFOC-20090604828

PATIENT
  Sex: Female
  Weight: 58 kg

DRUGS (16)
  1. DURAGESIC-100 [Suspect]
     Route: 062
  2. DURAGESIC-100 [Suspect]
     Route: 062
  3. DURAGESIC-100 [Suspect]
     Indication: ANALGESIA
     Route: 062
  4. NULYTELY [Concomitant]
  5. LYRICA [Concomitant]
  6. EFFEXOR [Concomitant]
  7. PROPRANOLOL HYDROCHLORIDE [Concomitant]
  8. LASIX [Concomitant]
  9. XANAX [Concomitant]
  10. XANAX [Concomitant]
  11. METHYLPREDNISOLONE [Concomitant]
     Route: 042
  12. ACETAMINOPHEN [Concomitant]
     Route: 042
  13. DEBRIDAT [Concomitant]
     Route: 042
  14. SPASFON [Concomitant]
     Route: 042
  15. NEXIUM [Concomitant]
     Route: 042
  16. OCTREOTIDE ACETATE [Concomitant]
     Route: 042

REACTIONS (3)
  - INAPPROPRIATE SCHEDULE OF DRUG ADMINISTRATION [None]
  - OVERDOSE [None]
  - SOMNOLENCE [None]
